FAERS Safety Report 6968404-0 (Version None)
Quarter: 2010Q3

REPORT INFORMATION
  Report Type: 
  Country: None (occurrence: None)
  Receive Date: 20100907
  Receipt Date: 20100824
  Transmission Date: 20110219
  Serious: Yes (Hospitalization, Other)
  Sender: FDA-Public Use
  Company Number: PHHY2010AU50397

PATIENT
  Sex: Female

DRUGS (1)
  1. ZOLEDRONIC [Suspect]
     Dosage: 5 MG
     Dates: start: 20100730

REACTIONS (10)
  - ARTHRALGIA [None]
  - BLOOD BICARBONATE DECREASED [None]
  - BLOOD CHLORIDE INCREASED [None]
  - BLOOD CREATININE INCREASED [None]
  - GLOMERULAR FILTRATION RATE DECREASED [None]
  - PARAESTHESIA ORAL [None]
  - RASH [None]
  - SWELLING FACE [None]
  - TYPE I HYPERSENSITIVITY [None]
  - URTICARIA [None]
